FAERS Safety Report 4269469-X (Version None)
Quarter: 2004Q1

REPORT INFORMATION
  Report Type: 
  Country: None (occurrence: None)
  Receive Date: 20040113
  Receipt Date: 20031117
  Transmission Date: 20041129
  Serious: Yes (Hospitalization)
  Sender: FDA-Public Use
  Company Number: FR-ROCHE-352002

PATIENT
  Age: 15 Year
  Sex: Female

DRUGS (2)
  1. ROACCUTANE [Suspect]
     Route: 048
  2. EFFEXOR [Interacting]
     Indication: ANOREXIA
     Route: 065

REACTIONS (4)
  - DRUG INTERACTION [None]
  - MYDRIASIS [None]
  - SOMNOLENCE [None]
  - VISUAL DISTURBANCE [None]
